FAERS Safety Report 19715408 (Version 1)
Quarter: 2021Q3

REPORT INFORMATION
  Report Type: Spontaneous
  Country: DE (occurrence: DE)
  Receive Date: 20210818
  Receipt Date: 20210818
  Transmission Date: 20211014
  Serious: Yes (Death, Hospitalization)
  Sender: FDA-Public Use
  Company Number: DE-TILLOMED LABORATORIES LTD.-2021-EPL-002629

PATIENT
  Age: 67 Year
  Sex: Female
  Weight: 68 kg

DRUGS (16)
  1. POTASSIUM CITRATE. [Concomitant]
     Active Substance: POTASSIUM CITRATE
     Dosage: 1?1?1?0
  2. PANTOPRAZOLE [Concomitant]
     Active Substance: PANTOPRAZOLE
     Dosage: 40 MG, 1?0?0?0
  3. DOMPERIDONE [Concomitant]
     Active Substance: DOMPERIDONE
     Dosage: 10 MG, 1?0?1?0
  4. METAMIZOLE [Concomitant]
     Active Substance: METAMIZOLE
     Dosage: 40 GTT, 1?1?1?1
  5. POTASSIUM CHLORIDE. [Concomitant]
     Active Substance: POTASSIUM CHLORIDE
     Dosage: 1?0?1?0
  6. SPIRONOLACTONE. [Concomitant]
     Active Substance: SPIRONOLACTONE
     Dosage: 25 MG, 1?0?0?0
  7. POTASSIUM PHOSPHATE / SODIUM PHOSPHATE [Concomitant]
     Dosage: 2?2?2?0
  8. CANDESARTAN. [Concomitant]
     Active Substance: CANDESARTAN
     Dosage: 4 MG, 1?0?0?0
  9. MORPHINE [Concomitant]
     Active Substance: MORPHINE
     Dosage: 5 MG, AS REQUIRED
  10. BISACODYL. [Concomitant]
     Active Substance: BISACODYL
     Dosage: 10 GTT, 1?0?0?0
  11. PREGABALIN. [Concomitant]
     Active Substance: PREGABALIN
     Dosage: 50 MG, 1?0?1?0
  12. TOLVAPTAN [Concomitant]
     Active Substance: TOLVAPTAN
     Dosage: 7.5 MG, 1?0?0?0
  13. LEVOTHYROXINE?SODIUM [Concomitant]
     Dosage: 125 ?G, 1?0?0?0
  14. ZOLEDRONIC ACID [Suspect]
     Active Substance: ZOLEDRONIC ACID
     Indication: PRODUCT USED FOR UNKNOWN INDICATION
     Dosage: UNK
  15. AMITRIPTYLINE [Concomitant]
     Active Substance: AMITRIPTYLINE
     Dosage: 50 MG, 0?0?0?1
  16. MORPHINE [Concomitant]
     Active Substance: MORPHINE
     Dosage: 10 MG, 2?0?2?0

REACTIONS (7)
  - Condition aggravated [Unknown]
  - Pain [Unknown]
  - Musculoskeletal pain [Unknown]
  - Anaemia [Unknown]
  - Hypertension [Unknown]
  - Night sweats [Unknown]
  - General physical health deterioration [Unknown]
